FAERS Safety Report 7457373-5 (Version None)
Quarter: 2011Q2

REPORT INFORMATION
  Report Type: 
  Country: None (occurrence: None)
  Receive Date: 20110502
  Receipt Date: 20110502
  Transmission Date: 20111010
  Serious: Yes (Hospitalization)
  Sender: FDA-Public Use
  Company Number: None

PATIENT
  Sex: Female

DRUGS (4)
  1. CEFTRIAXONE [Suspect]
     Indication: PELVIC MASS
     Dosage: 1 GRAM DAILY IV
     Route: 042
     Dates: start: 20110325, end: 20110406
  2. CEFTRIAXONE [Suspect]
     Indication: ABSCESS
     Dosage: 1 GRAM DAILY IV
     Route: 042
     Dates: start: 20110325, end: 20110406
  3. CEFTRIAXONE [Suspect]
     Indication: MUSCULOSKELETAL PAIN
     Dosage: 1 GRAM DAILY IV
     Route: 042
     Dates: start: 20110325, end: 20110406
  4. CEFTRIAXONE [Suspect]
     Dosage: 1 GRAM DAILY IV
     Route: 042
     Dates: start: 20110325, end: 20110406

REACTIONS (6)
  - DYSPNOEA [None]
  - HEART RATE INCREASED [None]
  - INFLAMMATION [None]
  - OEDEMA PERIPHERAL [None]
  - FLUID RETENTION [None]
  - BLOOD PRESSURE DECREASED [None]
